FAERS Safety Report 6502415-4 (Version None)
Quarter: 2009Q4

REPORT INFORMATION
  Report Type: 
  Country: None (occurrence: None)
  Receive Date: 20091216
  Receipt Date: 20091117
  Transmission Date: 20100525
  Serious: No
  Sender: FDA-Public Use
  Company Number: US-ABBOTT-09P-163-0609993-00

PATIENT
  Sex: Female

DRUGS (6)
  1. TRILIPIX [Suspect]
     Indication: HYPERLIPIDAEMIA
     Route: 048
     Dates: start: 20090930, end: 20091106
  2. ASPIRIN [Concomitant]
     Indication: DRUG USE FOR UNKNOWN INDICATION
     Route: 048
  3. HYDROCHLOROTHIAZIDE [Concomitant]
     Indication: HYPERTENSION
     Route: 048
  4. LISINOPRIL [Concomitant]
     Indication: HYPERTENSION
     Route: 048
  5. VESICARE [Concomitant]
     Indication: DRUG USE FOR UNKNOWN INDICATION
     Route: 048
  6. MIRALAX [Concomitant]
     Indication: DRUG USE FOR UNKNOWN INDICATION

REACTIONS (1)
  - HEPATIC ENZYME INCREASED [None]
